FAERS Safety Report 4940834-8 (Version None)
Quarter: 2006Q1

REPORT INFORMATION
  Report Type: 
  Country: None (occurrence: None)
  Receive Date: 20060307
  Receipt Date: 20060223
  Transmission Date: 20060701
  Serious: Yes (Death, Life-Threatening)
  Sender: FDA-Public Use
  Company Number: MC200600173

PATIENT
  Age: 63 Year
  Sex: Male
  Weight: 99.8 kg

DRUGS (27)
  1. ANGIOMAX [Suspect]
     Dates: start: 20051201
  2. HEPARIN [Suspect]
     Dates: start: 20051201
  3. NESIRITIDE (NESIRITIDE) INJECTION [Suspect]
     Indication: CARDIAC FAILURE
     Dosage: SEE IMAGE
     Dates: start: 20051003, end: 20051003
  4. NESIRITIDE (NESIRITIDE) INJECTION [Suspect]
     Indication: CARDIAC FAILURE
     Dosage: SEE IMAGE
     Dates: start: 20051003, end: 20051003
  5. NESIRITIDE (NESIRITIDE) INJECTION [Suspect]
     Indication: CARDIAC FAILURE
     Dosage: SEE IMAGE
     Dates: start: 20051031, end: 20051031
  6. NESIRITIDE (NESIRITIDE) INJECTION [Suspect]
     Indication: CARDIAC FAILURE
     Dosage: SEE IMAGE
     Dates: start: 20051031, end: 20051031
  7. NESIRITIDE (NESIRITIDE) INJECTION [Suspect]
     Indication: CARDIAC FAILURE
     Dosage: SEE IMAGE
     Dates: start: 20050718
  8. NESIRITIDE (NESIRITIDE) INJECTION [Suspect]
     Indication: CARDIAC FAILURE
     Dosage: SEE IMAGE
     Dates: start: 20050718
  9. AMIODARONE (AMIODARONE) [Concomitant]
  10. MEXILETINE HYDROCHLORIDE (MEXILETINE HYDROCHLORIDE) [Concomitant]
  11. LEVOTHYROXINE SODIUM [Concomitant]
  12. COREG [Concomitant]
  13. MAGNESIUM OXIDE (MAGNESIUM OXIDE) [Concomitant]
  14. FLOMAX [Concomitant]
  15. PROAMATINE [Concomitant]
  16. LASIX [Concomitant]
  17. ASPIRIN [Concomitant]
  18. TEMAZEPAM [Concomitant]
  19. SONATA [Concomitant]
  20. ADAVANT [Concomitant]
  21. IPRATROPIUM BROMIDE [Concomitant]
  22. TRIAMINIONE ACETONIDE CREAM [Concomitant]
  23. VOTONE CREAM [Concomitant]
  24. COLACE (DOCUSATE SODIUM) [Concomitant]
  25. LISINOPRIL [Concomitant]
  26. INSPIRA [Concomitant]
  27. WELLBUTRIN [Concomitant]

REACTIONS (12)
  - ABDOMINAL DISTENSION [None]
  - BLOOD CREATININE INCREASED [None]
  - BLOOD UREA INCREASED [None]
  - BRAIN NATRIURETIC PEPTIDE INCREASED [None]
  - CARDIAC FAILURE [None]
  - DISSEMINATED INTRAVASCULAR COAGULATION [None]
  - DYSPNOEA [None]
  - HEPARIN-INDUCED THROMBOCYTOPENIA [None]
  - HYPOTENSION [None]
  - PLEURAL EFFUSION [None]
  - POST PROCEDURAL COMPLICATION [None]
  - TREATMENT NONCOMPLIANCE [None]
